FAERS Safety Report 15507856 (Version 1)
Quarter: 2018Q4

REPORT INFORMATION
  Report Type: Spontaneous
  Country: US (occurrence: US)
  Receive Date: 20181016
  Receipt Date: 20181016
  Transmission Date: 20190205
  Serious: No
  Sender: FDA-Public Use
  Company Number: US-SA-2018SA284880

PATIENT
  Age: 70 Year

DRUGS (1)
  1. ICY HOT ADVANCED RELIEF (CAMPHOR (SYNTHETIC)\MENTHOL) [Suspect]
     Active Substance: CAMPHOR (SYNTHETIC)\MENTHOL
     Indication: BACK PAIN
     Dosage: UNK
     Dates: start: 20181009

REACTIONS (1)
  - Therapeutic response decreased [Unknown]
